FAERS Safety Report 5510232-7 (Version None)
Quarter: 2007Q4

REPORT INFORMATION
  Report Type: 
  Country: None (occurrence: None)
  Receive Date: 20071108
  Receipt Date: 20071029
  Transmission Date: 20080405
  Serious: Yes (Hospitalization)
  Sender: FDA-Public Use
  Company Number: US-ROCHE-527517

PATIENT
  Age: 33 Year
  Sex: Female

DRUGS (4)
  1. PEG-INTERFERON A-2A (RO 25-8310) [Suspect]
     Route: 065
     Dates: start: 20070909, end: 20071007
  2. PEG-INTERFERON A-2A (RO 25-8310) [Suspect]
     Dosage: MISSED 2 WEEKS OF TREATMENT AND NOW IN WEEK 6 OF TREATMENT
     Route: 065
     Dates: start: 20071028
  3. RIBAVIRIN [Suspect]
     Route: 065
     Dates: start: 20070909, end: 20071007
  4. RIBAVIRIN [Suspect]
     Dosage: MISSED 2 WEEKS OF TREATMENT AND NOW IN WEEK 6 OF TREATMENT
     Route: 065
     Dates: start: 20071028

REACTIONS (1)
  - MIGRAINE [None]
